FAERS Safety Report 6831426-4 (Version None)
Quarter: 2010Q3

REPORT INFORMATION
  Report Type: 
  Country: None (occurrence: None)
  Receive Date: 20100712
  Receipt Date: 20100614
  Transmission Date: 20110219
  Serious: No
  Sender: FDA-Public Use
  Company Number: US-TEVA-240389USA

PATIENT
  Sex: Male

DRUGS (1)
  1. AZILECT [Suspect]

REACTIONS (1)
  - CONSTIPATION [None]
